FAERS Safety Report 8664682 (Version 7)
Quarter: 2013Q3

REPORT INFORMATION
  Report Type: Spontaneous
  Country: US (occurrence: US)
  Receive Date: 20120713
  Receipt Date: 20130826
  Transmission Date: 20140515
  Serious: Yes (Hospitalization, Other)
  Sender: FDA-Public Use
  Company Number: US-009507513-2012SP011840

PATIENT
  Sex: Female
  Weight: 83.9 kg

DRUGS (4)
  1. NUVARING [Suspect]
     Indication: CONTRACEPTION
     Dosage: UNK
     Route: 067
     Dates: start: 2006
  2. NUVARING [Suspect]
     Indication: MENSTRUATION IRREGULAR
     Dosage: UNK
     Route: 067
     Dates: start: 200706, end: 200712
  3. NUVARING [Suspect]
     Dosage: UNK
     Route: 067
     Dates: start: 200807, end: 200903
  4. PLAVIX [Suspect]
     Indication: ANTICOAGULANT THERAPY

REACTIONS (79)
  - Viral infection [Unknown]
  - Viral infection [Recovering/Resolving]
  - Intracranial venous sinus thrombosis [Unknown]
  - Subarachnoid haemorrhage [Recovered/Resolved]
  - Abortion induced [Recovered/Resolved]
  - Constipation [Unknown]
  - Pharyngitis streptococcal [Unknown]
  - Vulvovaginal discomfort [Unknown]
  - Vulvovaginal pain [Unknown]
  - Bacterial vaginosis [Unknown]
  - Urinary tract infection [Unknown]
  - Upper respiratory tract infection [Unknown]
  - Oropharyngeal pain [Unknown]
  - Hand fracture [Unknown]
  - Drug hypersensitivity [Unknown]
  - Drug hypersensitivity [Unknown]
  - Haematuria [Unknown]
  - Tonsillectomy [Unknown]
  - Abdominal pain upper [Unknown]
  - Vulvovaginal candidiasis [Unknown]
  - Ingrowing nail [Unknown]
  - Acrochordon [Unknown]
  - Conjunctivitis [Unknown]
  - Diphtheria [Recovered/Resolved]
  - Vascular procedure complication [Unknown]
  - Blood iron decreased [Unknown]
  - Headache [Not Recovered/Not Resolved]
  - Migraine [Not Recovered/Not Resolved]
  - Gonorrhoea [Unknown]
  - Chlamydial infection [Unknown]
  - Varicose vein [Unknown]
  - Dysfunctional uterine bleeding [Unknown]
  - Device expulsion [Unknown]
  - Deep vein thrombosis [Unknown]
  - Thrombosis [Unknown]
  - Deep vein thrombosis [Unknown]
  - Axillary vein thrombosis [Unknown]
  - Muscle spasms [Unknown]
  - Deep vein thrombosis [Unknown]
  - Rash [Unknown]
  - Anaemia [Unknown]
  - Vaginal infection [Unknown]
  - Upper respiratory tract infection [Recovering/Resolving]
  - Candida infection [Unknown]
  - Premenstrual dysphoric disorder [Unknown]
  - Premenstrual syndrome [Unknown]
  - Vaginal disorder [Unknown]
  - Irritability [Recovered/Resolved]
  - Menorrhagia [Recovered/Resolved]
  - Dysmenorrhoea [Recovered/Resolved]
  - Local swelling [Recovered/Resolved]
  - Tonsillitis [Unknown]
  - Adenoidectomy [Unknown]
  - Snoring [Unknown]
  - Depression [Unknown]
  - Sleep disorder [Unknown]
  - Pharyngitis [Unknown]
  - Thrombophlebitis superficial [Unknown]
  - Eczema [Unknown]
  - Rash [Not Recovered/Not Resolved]
  - Hallucination [Unknown]
  - Urinary tract infection [Unknown]
  - Bronchial hyperreactivity [Unknown]
  - Chest discomfort [Unknown]
  - Head injury [Unknown]
  - Cyst [Unknown]
  - Haemangioma of liver [Unknown]
  - Lymphadenopathy [Unknown]
  - Treatment noncompliance [Unknown]
  - Alopecia [Unknown]
  - Anxiety [Unknown]
  - Phlebitis [Unknown]
  - Tinea infection [Unknown]
  - Autoimmune disorder [Unknown]
  - Off label use [Recovered/Resolved]
  - Headache [Recovering/Resolving]
  - Candida infection [Unknown]
  - Maternal exposure before pregnancy [Unknown]
  - Cerebrovascular insufficiency [Unknown]
